FAERS Safety Report 8694864 (Version 8)
Quarter: 2013Q1

REPORT INFORMATION
  Report Type: Spontaneous
  Country: None (occurrence: None)
  Receive Date: 20120716
  Receipt Date: 20121026
  Transmission Date: 20140127
  Serious: Yes (Life-Threatening, Other)
  Sender: FDA-Public Use
  Company Number: AUR-APL-2012-02887

PATIENT
  Age: 49 Year
  Sex: Female

DRUGS (8)
  1. MIRTAZAPINE (MIRTAZAPINE) [Suspect]
     Indication: DEPRESSION
     Route: 048
     Dates: start: 2006, end: 20120121
  2. MIRTAZAPINE (MIRTAZAPINE) [Suspect]
     Indication: DEPRESSION
     Route: 048
     Dates: start: 2006, end: 20120121
  3. TOPIRAMATE [Suspect]
     Indication: PSYCHOTIC DISORDER
     Route: 048
     Dates: start: 2007, end: 20120121
  4. TOPIRAMATE [Suspect]
     Indication: SCHIZOPHRENIA
     Route: 048
     Dates: start: 2007, end: 20120121
  5. CLOZARIL [Suspect]
     Indication: SCHIZOPHRENIA
     Dosage: (650 MG,4 IN 1 D)
     Route: 048
     Dates: start: 20060814, end: 20120109
  6. QUETIAPINE FUMARATE (QUETIAPINE FUMARATE) [Suspect]
     Dosage: (650 MG,4 IN 1 D)
     Dates: start: 2007
  7. AMOXICILLIN (AMOXICILLIN) [Concomitant]
  8. ZOPICLONE (ZOPICLONE) [Concomitant]

REACTIONS (11)
  - Toothache [None]
  - White blood cell count decreased [None]
  - Neutropenia [None]
  - Platelet count decreased [None]
  - Road traffic accident [None]
  - Tooth infection [None]
  - Multiple injuries [None]
  - Laceration [None]
  - Scratch [None]
  - Off label use [None]
  - Eosinophil count decreased [None]
